FAERS Safety Report 21679871 (Version 1)
Quarter: 2022Q4

REPORT INFORMATION
  Report Type: Spontaneous
  Country: US (occurrence: US)
  Receive Date: 20221205
  Receipt Date: 20221205
  Transmission Date: 20230113
  Serious: No
  Sender: FDA-Public Use
  Company Number: US-BIOVITRUM-2022US14184

PATIENT
  Sex: Female
  Weight: 7 kg

DRUGS (5)
  1. SYNAGIS [Suspect]
     Active Substance: PALIVIZUMAB
     Indication: Bronchopulmonary dysplasia
     Dates: start: 20221021
  2. IRON UP [Concomitant]
     Dosage: 15 MG/0.5 ML
  3. FAMOTIDINE [Concomitant]
     Active Substance: FAMOTIDINE
  4. SYNAGIS [Suspect]
     Active Substance: PALIVIZUMAB
     Indication: Premature baby
  5. SYNAGIS [Suspect]
     Active Substance: PALIVIZUMAB
     Indication: General physical health deterioration

REACTIONS (2)
  - Feeling hot [Unknown]
  - Irritability [Unknown]
